FAERS Safety Report 9420392 (Version 2)
Quarter: 2013Q3

REPORT INFORMATION
  Report Type: Spontaneous
  Country: CA (occurrence: CA)
  Receive Date: 20130725
  Receipt Date: 20130820
  Transmission Date: 20140515
  Serious: Yes (Hospitalization, Other)
  Sender: FDA-Public Use
  Company Number: CA-TEVA-420488USA

PATIENT
  Age: 57 Year
  Sex: Male

DRUGS (4)
  1. SANIS-VENLAFAXINE [Suspect]
     Indication: DEPRESSION
     Route: 048
     Dates: start: 20130629, end: 20130702
  2. AMOXI-CLAV [Suspect]
  3. NASONEX [Concomitant]
     Dosage: 2 SPRAYS EACH NOSTRIL
  4. ZOPICLONE [Concomitant]

REACTIONS (5)
  - Drug-induced liver injury [Unknown]
  - Ulcer [Unknown]
  - Jaundice [Unknown]
  - Blood bilirubin increased [Unknown]
  - Chromaturia [Unknown]
